FAERS Safety Report 8391105 (Version 5)
Quarter: 2013Q1

REPORT INFORMATION
  Report Type: Spontaneous
  Country: US (occurrence: US)
  Receive Date: 20120206
  Receipt Date: 20130115
  Transmission Date: 20140127
  Serious: Yes (Disabling)
  Sender: FDA-Public Use
  Company Number: US-PFIZER INC-2012027751

PATIENT
  Age: 80 Year
  Sex: Male
  Weight: 79.37 kg

DRUGS (7)
  1. LIPITOR [Suspect]
     Indication: BLOOD CHOLESTEROL ABNORMAL
     Dosage: 40 MG, DAILY
     Route: 048
     Dates: start: 2011
  2. LIPITOR [Suspect]
     Dosage: 20 MG, ALTERNATE DAY
     Route: 048
  3. LIPITOR [Suspect]
     Dosage: UNK, 1X/DAY
     Route: 048
  4. OXYBUTYNIN [Concomitant]
     Indication: BLADDER DISORDER
     Dosage: 15 MG, 2X/DAY
  5. TAMSULOSIN HYDROCHLORIDE [Concomitant]
     Indication: BLOOD CHOLESTEROL ABNORMAL
     Dosage: 40 MG, DAILY
  6. LEVOTHYROXINE [Concomitant]
     Indication: THYROID DISORDER
     Dosage: 75 MCG DAILY
  7. CLONAZEPAM [Concomitant]
     Indication: SLEEP DISORDER
     Dosage: 0.5 MG TWO TABLETS DAILY

REACTIONS (6)
  - Fall [Unknown]
  - Upper limb fracture [Recovering/Resolving]
  - Wrist fracture [Recovering/Resolving]
  - Skeletal injury [Recovering/Resolving]
  - Tooth loss [Recovering/Resolving]
  - Musculoskeletal disorder [Recovering/Resolving]
